FAERS Safety Report 9525530 (Version 2)
Quarter: 2013Q4

REPORT INFORMATION
  Report Type: Report from Study
  Country: CA (occurrence: CA)
  Receive Date: 20130916
  Receipt Date: 20131010
  Transmission Date: 20140711
  Serious: Yes (Other)
  Sender: FDA-Public Use
  Company Number: CA-JNJFOC-20130906002

PATIENT
  Age: 39 Year
  Sex: Female
  Weight: 50 kg

DRUGS (5)
  1. REMICADE [Suspect]
     Indication: CROHN^S DISEASE
     Dosage: EVERY 2, 6 AND WEEKS
     Route: 042
     Dates: start: 201308
  2. CIPROFLOXACIN [Concomitant]
     Route: 065
  3. IMURAN [Concomitant]
     Route: 065
  4. PARIET [Concomitant]
     Route: 065
  5. DOCUSATE [Concomitant]
     Dosage: OCCASIONALLY
     Route: 065

REACTIONS (5)
  - Chest discomfort [Recovered/Resolved]
  - Infusion related reaction [Recovering/Resolving]
  - Throat tightness [Recovered/Resolved]
  - Urticaria [Recovering/Resolving]
  - Dyspepsia [Recovering/Resolving]
